FAERS Safety Report 15719693 (Version 3)
Quarter: 2019Q1

REPORT INFORMATION
  Report Type: Spontaneous
  Country: BR (occurrence: BR)
  Receive Date: 20181213
  Receipt Date: 20190117
  Transmission Date: 20190417
  Serious: Yes (Other)
  Sender: FDA-Public Use
  Company Number: BR-ELI_LILLY_AND_COMPANY-BR201812005073

PATIENT
  Sex: Female
  Weight: 66 kg

DRUGS (8)
  1. HUMULIN N [Suspect]
     Active Substance: INSULIN HUMAN
     Dosage: 12 IU, AT 11H
     Route: 065
     Dates: start: 201805
  2. LEVOID [Concomitant]
     Active Substance: LEVOTHYROXINE
     Indication: THYROID DISORDER
     Dosage: 75 MG, DAILY
     Route: 065
     Dates: start: 2002
  3. ENALAPRIL [Concomitant]
     Active Substance: ENALAPRIL
     Indication: BLOOD PRESSURE INCREASED
     Dosage: 20 MG, BID
     Route: 065
     Dates: start: 2002, end: 201805
  4. HUMULIN N [Suspect]
     Active Substance: INSULIN HUMAN
     Indication: TYPE 2 DIABETES MELLITUS
     Dosage: 14 IU, EACH MORNING
     Route: 065
     Dates: start: 201805
  5. AZUKON [Concomitant]
     Active Substance: GLICLAZIDE
     Indication: DIABETES MELLITUS
     Dosage: 30 MG, DAILY
     Route: 065
  6. HUMULIN N [Suspect]
     Active Substance: INSULIN HUMAN
     Dosage: 10 IU, EACH EVENING
     Route: 065
     Dates: start: 201805
  7. AMLODIPIN [AMLODIPINE] [Concomitant]
     Dosage: 5 MG, DAILY
     Route: 065
  8. METFORMIN [Concomitant]
     Active Substance: METFORMIN HYDROCHLORIDE
     Dosage: UNK, UNKNOWN
     Route: 065

REACTIONS (3)
  - Blindness [Not Recovered/Not Resolved]
  - Dysstasia [Unknown]
  - Product storage error [Unknown]
